FAERS Safety Report 13653754 (Version 3)
Quarter: 2017Q3

REPORT INFORMATION
  Report Type: Spontaneous
  Country: FR (occurrence: FR)
  Receive Date: 20170614
  Receipt Date: 20170703
  Transmission Date: 20171127
  Serious: Yes (Disabling)
  Sender: FDA-Public Use
  Company Number: FR-BAYER-2017-110717

PATIENT
  Age: 44 Year
  Sex: Female

DRUGS (1)
  1. MIRENA [Suspect]
     Active Substance: LEVONORGESTREL
     Indication: CONTRACEPTION
     Dosage: 20 MCG/24HR, CONT
     Route: 015
     Dates: start: 20051101

REACTIONS (10)
  - Loss of libido [Not Recovered/Not Resolved]
  - Migraine [Not Recovered/Not Resolved]
  - Depression [Not Recovered/Not Resolved]
  - Amnesia [Not Recovered/Not Resolved]
  - Weight abnormal [Not Recovered/Not Resolved]
  - Vertigo [Not Recovered/Not Resolved]
  - Nervousness [Not Recovered/Not Resolved]
  - Tendonitis [Not Recovered/Not Resolved]
  - Fluid retention [Not Recovered/Not Resolved]
  - Headache [Not Recovered/Not Resolved]

NARRATIVE: CASE EVENT DATE: 2012
